FAERS Safety Report 25069820 (Version 1)
Quarter: 2025Q1

REPORT INFORMATION
  Report Type: Spontaneous
  Country: US (occurrence: US)
  Receive Date: 20250312
  Receipt Date: 20250312
  Transmission Date: 20250409
  Serious: Yes (Hospitalization, Other)
  Sender: FRESENIUS KABI
  Company Number: US-FreseniusKabi-FK202503795

PATIENT
  Age: 73 Year
  Sex: Female

DRUGS (4)
  1. CARBOPLATIN [Suspect]
     Active Substance: CARBOPLATIN
     Indication: Ovarian cancer
  2. CARBOPLATIN [Suspect]
     Active Substance: CARBOPLATIN
  3. PACLITAXEL [Suspect]
     Active Substance: PACLITAXEL
     Indication: Ovarian cancer
     Dosage: NEOADJUVANT CHEMOTHERAPY?EVERY 21 DAYS?RESUMED ON CYCLES 4 AND 6
  4. CISPLATIN [Concomitant]
     Active Substance: CISPLATIN
     Indication: Ovarian cancer

REACTIONS (2)
  - Cardiac failure acute [Recovering/Resolving]
  - Cardiomyopathy acute [Recovering/Resolving]
